FAERS Safety Report 4578951-7 (Version None)
Quarter: 2005Q1

REPORT INFORMATION
  Report Type: 
  Country: None (occurrence: None)
  Receive Date: 20050211
  Receipt Date: 20050127
  Transmission Date: 20050727
  Serious: Yes (Hospitalization, Other)
  Sender: FDA-Public Use
  Company Number: US-MERCK-0501USA04560

PATIENT
  Age: 56 Year
  Sex: Male

DRUGS (5)
  1. ZETIA [Suspect]
     Indication: HYPERCHOLESTEROLAEMIA
     Route: 048
     Dates: start: 20041216, end: 20050101
  2. HYZAAR [Concomitant]
     Route: 048
  3. SYNTHROID [Concomitant]
     Route: 065
  4. ZOCOR [Concomitant]
     Route: 048
  5. TRICOR [Concomitant]
     Route: 065

REACTIONS (3)
  - HYPERGLYCAEMIA [None]
  - PANCREATITIS [None]
  - PNEUMONIA [None]
